FAERS Safety Report 12470400 (Version 2)
Quarter: 2016Q3

REPORT INFORMATION
  Report Type: Spontaneous
  Country: CN (occurrence: CN)
  Receive Date: 20160616
  Receipt Date: 20160701
  Transmission Date: 20161109
  Serious: Yes (Life-Threatening)
  Sender: FDA-Public Use
  Company Number: CN-ROCHE-1776540

PATIENT
  Age: 62 Year
  Sex: Male
  Weight: 55 kg

DRUGS (3)
  1. HERCEPTIN [Suspect]
     Active Substance: TRASTUZUMAB
     Indication: GASTRIC CANCER STAGE IV
     Route: 041
     Dates: start: 20150525, end: 20150525
  2. XELODA [Suspect]
     Active Substance: CAPECITABINE
     Indication: GASTRIC CANCER STAGE IV
     Dosage: 3 TABLET IN THE MORNING AND 2 TABS IN THE EVENING, STOP DATE: /MAY/2015
     Route: 048
     Dates: start: 20160525
  3. OXALIPLATIN. [Suspect]
     Active Substance: OXALIPLATIN
     Indication: GASTRIC CANCER STAGE IV
     Route: 041
     Dates: start: 20160525, end: 20160525

REACTIONS (1)
  - Gastric haemorrhage [Recovering/Resolving]

NARRATIVE: CASE EVENT DATE: 201605
